FAERS Safety Report 5363798-4 (Version None)
Quarter: 2007Q2

REPORT INFORMATION
  Report Type: 
  Country: None (occurrence: None)
  Receive Date: 20070620
  Receipt Date: 20070608
  Transmission Date: 20071010
  Serious: Yes (Other)
  Sender: FDA-Public Use
  Company Number: US-MERCK-0706USA01956

PATIENT
  Age: 67 Year
  Sex: Male

DRUGS (5)
  1. COZAAR [Suspect]
     Route: 048
  2. ATORVASTATIN [Suspect]
     Route: 065
  3. ASPIRIN [Concomitant]
     Route: 065
  4. FLUTICASONE PROPIONATE [Concomitant]
     Route: 065
  5. LOVASTATIN [Concomitant]
     Route: 065

REACTIONS (6)
  - AMYOTROPHIC LATERAL SCLEROSIS [None]
  - ASTHENIA [None]
  - CONFUSIONAL STATE [None]
  - DYSARTHRIA [None]
  - FALL [None]
  - MYOCARDIAL INFARCTION [None]
